FAERS Safety Report 9773554 (Version 2)
Quarter: 2013Q4

REPORT INFORMATION
  Report Type: Spontaneous
  Country: US (occurrence: US)
  Receive Date: 20131219
  Receipt Date: 20131219
  Transmission Date: 20140711
  Serious: Yes (Other)
  Sender: FDA-Public Use
  Company Number: US-UCBSA-104408

PATIENT
  Sex: Female
  Weight: 61.23 kg

DRUGS (3)
  1. KEPPRA XR [Suspect]
     Indication: CONVULSION
     Dosage: STRENGTH: 500 MG (EXTENDED RELEASE TABLET), (2) 500MG IN THE AM AND (2) 500MG IN THE PM
     Route: 048
  2. KEPPRA XR [Suspect]
     Indication: CONVULSION
     Dosage: 1000MG IN THE MORNING AND 1500MG IN THE EVENING
     Route: 048
  3. LAMICTAL [Concomitant]
     Indication: CONVULSION
     Dosage: TAKINGG FOR 8 TO 10 YEARS, 250 MG IN THE MORNING AND 250 MG IN THE EVENING
     Route: 048

REACTIONS (1)
  - Grand mal convulsion [Recovered/Resolved]
